FAERS Safety Report 9181499 (Version 1)
Quarter: 2013Q1

REPORT INFORMATION
  Report Type: Spontaneous
  Country: JP (occurrence: JP)
  Receive Date: 20130322
  Receipt Date: 20130322
  Transmission Date: 20140127
  Serious: Yes (Death, Other)
  Sender: FDA-Public Use
  Company Number: JP-ASTELLAS-2013JP004108

PATIENT
  Age: 9 Year
  Sex: Female

DRUGS (9)
  1. PROGRAF [Suspect]
     Indication: PROPHYLAXIS AGAINST GRAFT VERSUS HOST DISEASE
     Route: 065
  2. METHOTREXATE [Concomitant]
     Indication: PROPHYLAXIS AGAINST GRAFT VERSUS HOST DISEASE
     Route: 065
  3. FLUDARABINE PHOSPHATE [Concomitant]
     Indication: PREMEDICATION
     Route: 065
  4. ALKERAN                            /00006401/ [Concomitant]
     Indication: PREMEDICATION
     Route: 065
  5. IMMUNOGLOBULIN I.V [Concomitant]
     Dosage: UNK
     Route: 042
  6. POLYMYXIN B SULFATE [Concomitant]
     Indication: ANTIBIOTIC PROPHYLAXIS
     Route: 048
  7. ANTIFUNGALS FOR SYSTEMIC USE [Concomitant]
     Indication: ANTIFUNGAL PROPHYLAXIS
     Route: 065
  8. ACYCLOVIR                          /00587301/ [Concomitant]
     Indication: ANTIVIRAL PROPHYLAXIS
     Route: 065
  9. TRIMETHOPRIM SULFAMETHOXAZOLE [Concomitant]
     Indication: PROPHYLAXIS
     Route: 065

REACTIONS (3)
  - Drug ineffective [Unknown]
  - Acute graft versus host disease [Fatal]
  - Enterococcal infection [Unknown]
